FAERS Safety Report 9863260 (Version 1)
Quarter: 2014Q1

REPORT INFORMATION
  Report Type: Spontaneous
  Country: US (occurrence: US)
  Receive Date: 20140203
  Receipt Date: 20140203
  Transmission Date: 20141002
  Serious: No
  Sender: FDA-Public Use
  Company Number: US-PFIZER INC-2014027236

PATIENT
  Age: 52 Year
  Sex: Female
  Weight: 72.56 kg

DRUGS (4)
  1. ALAVERT [Suspect]
     Indication: SINUS DISORDER
     Dosage: 10 MG, AS NEEDED
     Route: 048
     Dates: start: 201307
  2. ALAVERT [Suspect]
     Indication: RHINORRHOEA
  3. ALAVERT [Suspect]
     Indication: LACRIMATION INCREASED
  4. METFORMIN [Concomitant]
     Indication: DIABETES MELLITUS
     Dosage: UNK, TWO TIMES A DAY

REACTIONS (3)
  - Drug effect incomplete [Unknown]
  - Pruritus [Unknown]
  - Sneezing [Unknown]
